FAERS Safety Report 18853666 (Version 1)
Quarter: 2021Q1

REPORT INFORMATION
  Report Type: Spontaneous
  Country: US (occurrence: US)
  Receive Date: 20210205
  Receipt Date: 20210205
  Transmission Date: 20210420
  Serious: No
  Sender: FDA-Public Use
  Company Number: US-MYLANLABS-2021M1005462

PATIENT
  Age: 92 Year
  Sex: Female

DRUGS (1)
  1. ESTRADIOL VAGINAL CREAM USP [Suspect]
     Active Substance: ESTRADIOL
     Indication: PRODUCT USED FOR UNKNOWN INDICATION
     Dosage: 3 TIMES A WEEK (MONDAY, WEDNESDAY AND FRIDAY)
     Route: 067

REACTIONS (3)
  - Urinary tract inflammation [Not Recovered/Not Resolved]
  - Micturition urgency [Not Recovered/Not Resolved]
  - Application site pain [Not Recovered/Not Resolved]
